FAERS Safety Report 6671759-8 (Version None)
Quarter: 2010Q2

REPORT INFORMATION
  Report Type: 
  Country: None (occurrence: None)
  Receive Date: 20100407
  Receipt Date: 20100324
  Transmission Date: 20101027
  Serious: Yes (Other)
  Sender: FDA-Public Use
  Company Number: GB-MYLANLABS-2010S1003338

PATIENT
  Age: 49 Year
  Sex: Female

DRUGS (2)
  1. FLUOXETINE [Suspect]
     Indication: DEPRESSION
  2. TRIMETHOPRIM [Concomitant]
     Indication: URINARY TRACT INFECTION

REACTIONS (3)
  - CYSTITIS [None]
  - DYSPHONIA [None]
  - INSOMNIA [None]
